FAERS Safety Report 10310823 (Version 1)
Quarter: 2014Q3

REPORT INFORMATION
  Report Type: Spontaneous
  Country: IT (occurrence: None)
  Receive Date: 20140715
  Receipt Date: 20140715
  Transmission Date: 20150326
  Serious: Yes (Hospitalization)
  Sender: FDA-Public Use
  Company Number: 2014STPI000308

PATIENT
  Age: 46 Year
  Sex: Male

DRUGS (13)
  1. GRANOCYTE (LENOGRASTIM) [Suspect]
     Active Substance: LENOGRASTIM
     Indication: HODGKIN^S DISEASE
     Dates: start: 20140509, end: 20140514
  2. ETOPOSIDE (ETOPOSIDE) [Suspect]
     Active Substance: ETOPOSIDE
     Indication: HODGKIN^S DISEASE
     Route: 042
     Dates: start: 20140425, end: 20140516
  3. CLOPIDOGREL (CLOPIDOGREL BESYLATE) [Concomitant]
  4. DOXORUBICINE (DOXORUBICIN HYDROCHLORIDE) [Suspect]
     Active Substance: DOXORUBICIN HYDROCHLORIDE
     Indication: HODGKIN^S DISEASE
     Route: 042
     Dates: start: 20140425, end: 20140516
  5. MATULANE [Suspect]
     Active Substance: PROCARBAZINE HYDROCHLORIDE
     Indication: HODGKIN^S DISEASE
     Dates: start: 20140425, end: 20140502
  6. UROMITEXAN (MESNA) [Suspect]
     Active Substance: MESNA
     Indication: HODGKIN^S DISEASE
     Route: 048
     Dates: start: 20140425, end: 20140516
  7. VINCRISTINE (VINCRISTINE SULFATE) [Suspect]
     Active Substance: VINCRISTINE SULFATE
     Indication: HODGKIN^S DISEASE
     Route: 042
     Dates: start: 20140502, end: 20140523
  8. CORTANCYL (PREDNISONE) [Suspect]
     Active Substance: PREDNISONE
     Indication: PRODUCT USED FOR UNKNOWN INDICATION
     Route: 048
     Dates: start: 20140428, end: 20140509
  9. TRAMADOL (TRAMADOL HYDROCHLORIDE) [Suspect]
     Active Substance: TRAMADOL HYDROCHLORIDE
     Indication: PRODUCT USED FOR UNKNOWN INDICATION
  10. ROSUVASTATINE (ROSUVASTATIN CALCIUM) [Concomitant]
  11. ENDOXAN (CYCLOPHOSPHAMIDE) [Suspect]
     Active Substance: CYCLOPHOSPHAMIDE
     Indication: HODGKIN^S DISEASE
     Route: 042
     Dates: start: 20140425, end: 20140518
  12. AUGMENTIN [Suspect]
     Active Substance: AMOXICILLIN\CLAVULANATE POTASSIUM
     Indication: PRODUCT USED FOR UNKNOWN INDICATION
     Route: 048
     Dates: start: 20140509, end: 20140603
  13. BLEOMYCINE (BLEOMYCIN SULFATE) [Concomitant]

REACTIONS (1)
  - Interstitial lung disease [None]

NARRATIVE: CASE EVENT DATE: 20140601
